FAERS Safety Report 13710501 (Version 1)
Quarter: 2017Q2

REPORT INFORMATION
  Report Type: Spontaneous
  Country: US (occurrence: US)
  Receive Date: 20170630
  Receipt Date: 20170630
  Transmission Date: 20170830
  Serious: No
  Sender: FDA-Public Use
  Company Number: None

PATIENT
  Age: 52 Year
  Sex: Male

DRUGS (1)
  1. REPATHA [Suspect]
     Active Substance: EVOLOCUMAB
     Indication: HYPERLIPIDAEMIA
     Dosage: ?          OTHER DOSE:ML;OTHER FREQUENCY:EVERY 2 WEEKS;?
     Route: 058
     Dates: start: 20170526, end: 20170630

REACTIONS (6)
  - Swelling [None]
  - Rhinorrhoea [None]
  - Influenza like illness [None]
  - Oropharyngeal pain [None]
  - Bone pain [None]
  - Headache [None]

NARRATIVE: CASE EVENT DATE: 20170609
